FAERS Safety Report 6702681-6 (Version None)
Quarter: 2010Q2

REPORT INFORMATION
  Report Type: 
  Country: None (occurrence: None)
  Receive Date: 20100429
  Receipt Date: 20100421
  Transmission Date: 20101027
  Serious: Yes (Disabling)
  Sender: FDA-Public Use
  Company Number: US-MPIJNJ-2010-01921

PATIENT
  Sex: Male

DRUGS (1)
  1. VELCADE [Suspect]
     Indication: MULTIPLE MYELOMA
     Dosage: 3.5 MG, UNK
     Route: 042
     Dates: start: 20080106, end: 20080526

REACTIONS (2)
  - BLINDNESS CORTICAL [None]
  - OPTIC NEUROPATHY [None]
